FAERS Safety Report 12365236 (Version 1)
Quarter: 2016Q2

REPORT INFORMATION
  Report Type: Spontaneous
  Country: US (occurrence: None)
  Receive Date: 20160512
  Receipt Date: 20160512
  Transmission Date: 20160815
  Serious: Yes (Life-Threatening, Hospitalization, Disabling, Other)
  Sender: FDA-Public Use
  Company Number: None

PATIENT
  Age: 58 Year
  Sex: Female
  Weight: 56.7 kg

DRUGS (2)
  1. CIPROFLOXACIN BAYER [Suspect]
     Active Substance: CIPROFLOXACIN
     Indication: COLITIS
     Route: 048
     Dates: start: 20150816, end: 20150825
  2. WARFARIN [Suspect]
     Active Substance: WARFARIN

REACTIONS (9)
  - Peripheral swelling [None]
  - Cardiomyopathy [None]
  - Alopecia [None]
  - Abasia [None]
  - Deep vein thrombosis [None]
  - Pulmonary embolism [None]
  - Oedema [None]
  - Clostridium difficile infection [None]
  - Muscle atrophy [None]

NARRATIVE: CASE EVENT DATE: 20150818
